FAERS Safety Report 7014314-2 (Version None)
Quarter: 2010Q3

REPORT INFORMATION
  Report Type: 
  Country: None (occurrence: None)
  Receive Date: 20100927
  Receipt Date: 20100922
  Transmission Date: 20110219
  Serious: Yes (Death)
  Sender: FDA-Public Use
  Company Number: US-US-EMD SERONO, INC.-7018330

PATIENT
  Sex: Male

DRUGS (6)
  1. REBIF [Suspect]
     Indication: MULTIPLE SCLEROSIS
     Route: 058
     Dates: start: 20090903, end: 20100921
  2. AMITRIPTYLINE HCL [Concomitant]
     Indication: INSOMNIA
     Dates: end: 20100921
  3. ASPIRIN [Concomitant]
     Dates: end: 20100921
  4. METOPROLOL TARTRATE [Concomitant]
     Indication: HYPERTENSION
     Dates: end: 20100921
  5. ZETIA [Concomitant]
     Indication: BLOOD CHOLESTEROL INCREASED
     Dates: end: 20100921
  6. MULTI-VITAMINS [Concomitant]
     Dates: end: 20100921

REACTIONS (2)
  - ASTHENIA [None]
  - CARDIAC ARREST [None]
